FAERS Safety Report 6454312-0 (Version None)
Quarter: 2009Q4

REPORT INFORMATION
  Report Type: 
  Country: None (occurrence: None)
  Receive Date: 20091124
  Receipt Date: 20091112
  Transmission Date: 20100525
  Serious: Yes (Hospitalization)
  Sender: FDA-Public Use
  Company Number: GB-MEDIMMUNE-MEDI-0009612

PATIENT
  Age: 8 Month
  Sex: Male
  Weight: 5.6 kg

DRUGS (2)
  1. SYNAGIS [Suspect]
     Dates: start: 20091013, end: 20091013
  2. ALBUTEROL [Concomitant]

REACTIONS (2)
  - RESPIRATORY DISORDER [None]
  - RESPIRATORY SYNCYTIAL VIRUS INFECTION [None]
